FAERS Safety Report 6203971-6 (Version None)
Quarter: 2009Q2

REPORT INFORMATION
  Report Type: 
  Country: None (occurrence: None)
  Receive Date: 20090527
  Receipt Date: 20090519
  Transmission Date: 20091009
  Serious: Yes (Hospitalization, Other)
  Sender: FDA-Public Use
  Company Number: B0573526A

PATIENT
  Age: 12 Year
  Sex: Male
  Weight: 28 kg

DRUGS (10)
  1. LAMICTAL [Suspect]
     Indication: EPILEPSY
     Route: 048
     Dates: start: 20090407
  2. EXCEGRAN [Concomitant]
     Indication: EPILEPSY
     Route: 048
     Dates: start: 20060201
  3. DEPAKENE [Concomitant]
     Indication: EPILEPSY
     Route: 048
  4. MEILAX [Concomitant]
     Indication: DRUG USE FOR UNKNOWN INDICATION
     Route: 048
  5. TOPIRAMATE [Concomitant]
     Indication: EPILEPSY
     Route: 048
     Dates: start: 20071101
  6. EXCEGRAN [Concomitant]
     Route: 048
     Dates: start: 20061201
  7. EXCEGRAN [Concomitant]
     Dates: start: 20090411
  8. TOPIRAMATE [Concomitant]
     Route: 048
     Dates: start: 20081201
  9. TOPIRAMATE [Concomitant]
     Route: 048
     Dates: start: 20090411, end: 20090511
  10. TOPIRAMATE [Concomitant]
     Route: 048
     Dates: start: 20090512

REACTIONS (4)
  - EOSINOPHIL COUNT INCREASED [None]
  - ERYTHEMA [None]
  - RASH [None]
  - STATUS EPILEPTICUS [None]
